FAERS Safety Report 21996186 (Version 1)
Quarter: 2023Q1

REPORT INFORMATION
  Report Type: Spontaneous
  Country: US (occurrence: None)
  Receive Date: 20230214
  Receipt Date: 20230214
  Transmission Date: 20230417
  Serious: Yes (Life-Threatening, Hospitalization)
  Sender: FDA-Public Use
  Company Number: None

PATIENT
  Sex: Female

DRUGS (3)
  1. CAPECITABINE [Suspect]
     Active Substance: CAPECITABINE
     Dosage: OTHER QUANTITY : 2000;?FREQUENCY : TWICE A DAY;?
     Route: 048
  2. ALPRAZOLAM [Suspect]
     Active Substance: ALPRAZOLAM
  3. METHADONE [Suspect]
     Active Substance: METHADONE HYDROCHLORIDE

REACTIONS (5)
  - Diarrhoea [None]
  - Abdominal discomfort [None]
  - Dyspnoea [None]
  - Drug interaction [None]
  - Brief resolved unexplained event [None]
